FAERS Safety Report 15948602 (Version 1)
Quarter: 2019Q1

REPORT INFORMATION
  Report Type: Other
  Country: DK (occurrence: DK)
  Receive Date: 20190211
  Receipt Date: 20190211
  Transmission Date: 20190417
  Serious: Yes (Other)
  Sender: FDA-Public Use
  Company Number: DK-ARALEZ PHARMACEUTICALS R+D INC.-2019-ARA-000335

PATIENT
  Age: 68 Year
  Sex: Male

DRUGS (2)
  1. METOPROLOL SUCCINATE. [Suspect]
     Active Substance: METOPROLOL SUCCINATE
     Indication: ANGINA UNSTABLE
     Dosage: DOSE: VARYING. STRENGTH: VARYING.
     Route: 048
     Dates: start: 200008
  2. CORDARONE [Concomitant]
     Active Substance: AMIODARONE HYDROCHLORIDE
     Indication: ANGINA UNSTABLE
     Dosage: 200 MG, QD
     Route: 048
     Dates: start: 20161130

REACTIONS (8)
  - Dizziness [Recovering/Resolving]
  - Syncope [Unknown]
  - Dyspnoea exertional [Not Recovered/Not Resolved]
  - Palpitations [Unknown]
  - Malaise [Unknown]
  - Fatigue [Unknown]
  - Dyspnoea [Not Recovered/Not Resolved]
  - Restlessness [Unknown]

NARRATIVE: CASE EVENT DATE: 2010
